APPROVED DRUG PRODUCT: IBUPROFEN
Active Ingredient: IBUPROFEN
Strength: 300MG
Dosage Form/Route: TABLET;ORAL
Application: A202413 | Product #004
Applicant: SHANDONG XINHUA PHARMACEUTICAL CO LTD
Approved: Jul 5, 2024 | RLD: No | RS: No | Type: RX